FAERS Safety Report 17990601 (Version 1)
Quarter: 2020Q3

REPORT INFORMATION
  Report Type: Spontaneous
  Country: US (occurrence: US)
  Receive Date: 20200707
  Receipt Date: 20200707
  Transmission Date: 20201103
  Serious: No
  Sender: FDA-Public Use
  Company Number: US-ELI_LILLY_AND_COMPANY-US202007002051

PATIENT
  Age: 55 Year
  Sex: Female

DRUGS (2)
  1. TRULICITY [Suspect]
     Active Substance: DULAGLUTIDE
     Indication: TYPE 2 DIABETES MELLITUS
     Dosage: 0.75 MG, UNKNOWN
     Route: 058
     Dates: end: 202005
  2. TRULICITY [Suspect]
     Active Substance: DULAGLUTIDE
     Indication: TYPE 2 DIABETES MELLITUS
     Dosage: 1.5 MG, UNKNOWN
     Route: 058

REACTIONS (8)
  - Gastrointestinal motility disorder [Recovered/Resolved]
  - Vulvovaginal burning sensation [Not Recovered/Not Resolved]
  - Bowel movement irregularity [Recovered/Resolved]
  - Glycosylated haemoglobin increased [Recovered/Resolved]
  - Vaginal infection [Not Recovered/Not Resolved]
  - Faeces hard [Recovered/Resolved]
  - Abdominal distension [Recovered/Resolved]
  - Vulvovaginal dryness [Not Recovered/Not Resolved]

NARRATIVE: CASE EVENT DATE: 202006
